FAERS Safety Report 8122213-8 (Version None)
Quarter: 2012Q1

REPORT INFORMATION
  Report Type: 
  Country: None (occurrence: None)
  Receive Date: 20120208
  Receipt Date: 20111110
  Transmission Date: 20120608
  Serious: Yes (Other)
  Sender: FDA-Public Use
  Company Number: FR-ROCHE-1036365

PATIENT
  Sex: Female

DRUGS (5)
  1. LORATADINE [Concomitant]
     Dosage: DOSE:2 SPOONS
     Dates: start: 20101026
  2. INCRELEX [Concomitant]
  3. SINGULAIR [Concomitant]
  4. SOMATROPIN [Suspect]
     Indication: FOETAL GROWTH RESTRICTION
     Dosage: STRENGTH:10MG/2ML
     Route: 030
     Dates: start: 20070112, end: 20110110
  5. FERROSTRANE [Concomitant]
     Dosage: DOSE:2 SPOONS
     Dates: start: 20110222

REACTIONS (2)
  - ADENOMATOUS POLYPOSIS COLI [None]
  - DYSPLASIA [None]
